FAERS Safety Report 16536221 (Version 2)
Quarter: 2019Q3

REPORT INFORMATION
  Report Type: Spontaneous
  Country: US (occurrence: US)
  Receive Date: 20190705
  Receipt Date: 20190729
  Transmission Date: 20191004
  Serious: No
  Sender: FDA-Public Use
  Company Number: US-PFIZER INC-2019286259

PATIENT
  Age: 40 Year
  Sex: Female

DRUGS (1)
  1. EUCRISA [Suspect]
     Active Substance: CRISABOROLE
     Indication: DERMATITIS ATOPIC
     Dosage: UNK, 2X/DAY [APPLY TO AFFECTED AREA(S) TWICE A DAY]
     Route: 061

REACTIONS (3)
  - Application site pain [Unknown]
  - Application site erythema [Unknown]
  - Application site pruritus [Unknown]
